FAERS Safety Report 18867619 (Version 1)
Quarter: 2021Q1

REPORT INFORMATION
  Report Type: Spontaneous
  Country: CH (occurrence: CH)
  Receive Date: 20210209
  Receipt Date: 20210209
  Transmission Date: 20210420
  Serious: Yes (Disabling)
  Sender: FDA-Public Use
  Company Number: CH-JNJFOC-20210213934

PATIENT
  Age: 42 Year
  Sex: Male

DRUGS (19)
  1. REMERON [Concomitant]
     Active Substance: MIRTAZAPINE
  2. TEMESTA EXPIDET [Concomitant]
     Active Substance: LORAZEPAM
     Dosage: AS NECESSARY
  3. LUVIT D3 [Concomitant]
     Active Substance: CHOLECALCIFEROL
  4. NIZORAL [Concomitant]
     Active Substance: KETOCONAZOLE
     Dosage: AS NECESSARY
  5. HALDOL DECANOAS [Suspect]
     Active Substance: HALOPERIDOL DECANOATE
     Indication: PRODUCT USED FOR UNKNOWN INDICATION
     Route: 030
     Dates: start: 20200618
  6. SIRDALUD [Concomitant]
     Active Substance: TIZANIDINE
  7. FORTALIS BALSAM [Concomitant]
     Dosage: AS NECESSARY
  8. AKINETON [Concomitant]
     Active Substance: BIPERIDEN HYDROCHLORIDE
     Dosage: AS NECESSARY
  9. DEXERYL [GLYCEROL;PARAFFIN, LIQUID;WHITE SOFT PARAFFIN] [Concomitant]
     Active Substance: GLYCERIN\MINERAL OIL\PETROLATUM
     Dosage: AS NECESSARY
  10. SEVRE LONG [Concomitant]
     Active Substance: MORPHINE SULFATE
  11. LOCERYL [Concomitant]
     Active Substance: AMOROLFINE HYDROCHLORIDE
  12. FLUOXETINE [Concomitant]
     Active Substance: FLUOXETINE HYDROCHLORIDE
  13. DAFALGAN [Concomitant]
     Active Substance: ACETAMINOPHEN
  14. BEPANTHENE PLUS [Concomitant]
     Dosage: AS NECESSARY
  15. MOVICOL [Concomitant]
     Active Substance: POLYETHYLENE GLYCOL 3350\POTASSIUM CHLORIDE\SODIUM BICARBONATE\SODIUM CHLORIDE
     Dosage: AS NECESSARY
  16. LAXOBERON [Concomitant]
     Active Substance: SODIUM PICOSULFATE
     Dosage: AS NECESSARY
  17. DALMADORM [Concomitant]
     Active Substance: FLURAZEPAM HYDROCHLORIDE
  18. SEVREDOL [Concomitant]
     Active Substance: MORPHINE
  19. FLECTOR EP [Concomitant]
     Active Substance: DICLOFENAC EPOLAMINE
     Dosage: AS NECESSARY

REACTIONS (1)
  - Amnestic disorder [Not Recovered/Not Resolved]

NARRATIVE: CASE EVENT DATE: 202006
